FAERS Safety Report 19485963 (Version 1)
Quarter: 2021Q3

REPORT INFORMATION
  Report Type: Spontaneous
  Country: FR (occurrence: FR)
  Receive Date: 20210702
  Receipt Date: 20210702
  Transmission Date: 20211014
  Serious: Yes (Hospitalization)
  Sender: FDA-Public Use
  Company Number: NVSC2021FR141912

PATIENT
  Age: 75 Year
  Sex: Male

DRUGS (2)
  1. MEKINIST [Suspect]
     Active Substance: TRAMETINIB DIMETHYL SULFOXIDE
     Indication: PRODUCT USED FOR UNKNOWN INDICATION
     Dosage: 2 MG, QD
     Route: 065
     Dates: start: 20210602, end: 20210619
  2. TAFINLAR [Suspect]
     Active Substance: DABRAFENIB MESYLATE
     Indication: PRODUCT USED FOR UNKNOWN INDICATION
     Dosage: 150 MG, BID
     Route: 065
     Dates: start: 20210602, end: 20210619

REACTIONS (7)
  - Arthralgia [Unknown]
  - Dyspnoea [Unknown]
  - Malaise [Unknown]
  - Pyrexia [Recovered/Resolved]
  - Loss of consciousness [Unknown]
  - Livedo reticularis [Unknown]
  - Pyrexia [Unknown]

NARRATIVE: CASE EVENT DATE: 20210618
